FAERS Safety Report 12740938 (Version 2)
Quarter: 2016Q3

REPORT INFORMATION
  Report Type: Report from Study
  Country: TR (occurrence: TR)
  Receive Date: 20160914
  Receipt Date: 20160919
  Transmission Date: 20161109
  Serious: Yes (Hospitalization)
  Sender: FDA-Public Use
  Company Number: TR-BRISTOL-MYERS SQUIBB COMPANY-BMS-2016-075234

PATIENT
  Age: 53 Year
  Sex: Female
  Weight: 52.1 kg

DRUGS (9)
  1. RENNIE DUO [Concomitant]
     Indication: ABDOMINAL PAIN UPPER
     Dosage: 100 ML, TID
     Route: 048
     Dates: start: 20160831
  2. NIVOLUMAB [Suspect]
     Active Substance: NIVOLUMAB
     Indication: HAEMATOLOGICAL MALIGNANCY
     Dosage: 156 MG, Q2WK
     Route: 042
     Dates: start: 20160816
  3. DICLOFENAC POTASSIUM. [Concomitant]
     Active Substance: DICLOFENAC POTASSIUM
     Indication: ABDOMINAL PAIN UPPER
     Dosage: 50 MG, BID
     Route: 048
     Dates: start: 20160831
  4. EXTERNAL-IBRUTINIB [Suspect]
     Active Substance: IBRUTINIB
     Indication: HAEMATOLOGICAL MALIGNANCY
     Dosage: 560 MG, QD
     Route: 048
     Dates: start: 20160816, end: 20160830
  5. PANKREOFLAT SEDANTE [Concomitant]
     Indication: ABDOMINAL PAIN UPPER
     Dosage: 250 MG, PRN
     Route: 048
     Dates: start: 20160821
  6. METPAMID                           /00041901/ [Concomitant]
     Indication: ABDOMINAL PAIN UPPER
     Dosage: 10 MG, PRN
     Route: 048
     Dates: start: 20160821
  7. BUSCOPAN PLUS [Concomitant]
     Active Substance: ACETAMINOPHEN\BUTYLSCOPOLAMINE BROMIDE
     Indication: ABDOMINAL PAIN UPPER
     Dosage: 510 MG, PRN
     Route: 048
     Dates: start: 20160821
  8. DILTIZEM [Concomitant]
     Indication: HYPOTENSION
     Dosage: 12.5 MG, UNK
     Route: 030
     Dates: start: 20160826
  9. SODIUM CHLORIDE. [Concomitant]
     Active Substance: SODIUM CHLORIDE
     Indication: HYPOTENSION
     Dosage: 1000 ML, UNK
     Route: 042
     Dates: start: 20160826

REACTIONS (2)
  - Amylase increased [Recovering/Resolving]
  - Lipase increased [Recovering/Resolving]

NARRATIVE: CASE EVENT DATE: 20160831
